FAERS Safety Report 16347865 (Version 1)
Quarter: 2019Q2

REPORT INFORMATION
  Report Type: Spontaneous
  Country: CN (occurrence: CN)
  Receive Date: 20190523
  Receipt Date: 20190523
  Transmission Date: 20190711
  Serious: Yes (Other)
  Sender: FDA-Public Use
  Company Number: CN-009507513-1905CHN009234

PATIENT
  Age: 87 Year
  Sex: Female
  Weight: 44 kg

DRUGS (6)
  1. TIENAM [Suspect]
     Active Substance: CILASTATIN SODIUM\IMIPENEM
     Indication: ABSCESS LIMB
  2. LEVOFLOXACIN (+) SODIUM CHLORIDE [Suspect]
     Active Substance: LEVOFLOXACIN
     Indication: SEPSIS
     Dosage: 0.25 GRAM, QD
     Route: 042
     Dates: start: 20190502, end: 20190505
  3. LEVOFLOXACIN (+) SODIUM CHLORIDE [Suspect]
     Active Substance: LEVOFLOXACIN
     Indication: ABSCESS LIMB
  4. TIENAM [Suspect]
     Active Substance: CILASTATIN SODIUM\IMIPENEM
     Indication: SEPSIS
     Dosage: 250 MILLIGRAM, TID
     Route: 042
     Dates: start: 20190502, end: 20190505
  5. LEVOFLOXACIN (+) SODIUM CHLORIDE [Suspect]
     Active Substance: LEVOFLOXACIN
     Indication: SOFT TISSUE INFECTION
  6. TIENAM [Suspect]
     Active Substance: CILASTATIN SODIUM\IMIPENEM
     Indication: SOFT TISSUE INFECTION

REACTIONS (1)
  - Delirium [Recovered/Resolved]

NARRATIVE: CASE EVENT DATE: 20190504
